FAERS Safety Report 6598140-4 (Version None)
Quarter: 2010Q1

REPORT INFORMATION
  Report Type: 
  Country: None (occurrence: None)
  Receive Date: 20100224
  Receipt Date: 20050202
  Transmission Date: 20100710
  Serious: No
  Sender: FDA-Public Use
  Company Number: US-ALLERGAN-200501155

PATIENT
  Age: 59 Year
  Sex: Female

DRUGS (5)
  1. BOTOX [Suspect]
     Indication: BLEPHAROSPASM
     Route: 030
     Dates: start: 20050112
  2. BOTOX [Suspect]
     Indication: TORTICOLLIS
  3. LORAZEPAM [Concomitant]
     Indication: HYPOTONIA
     Dates: start: 20020101
  4. LEXAPRO [Concomitant]
     Indication: DEPRESSION
     Dosage: 10MG, QD
     Dates: start: 20050119
  5. DIGOXIN [Concomitant]
     Indication: HEART RATE IRREGULAR
     Dosage: .25MG, QD
     Dates: start: 19950101

REACTIONS (3)
  - DRY MOUTH [None]
  - INFLUENZA [None]
  - TONGUE DRY [None]
